FAERS Safety Report 23083820 (Version 1)
Quarter: 2023Q4

REPORT INFORMATION
  Report Type: Spontaneous
  Country: US (occurrence: None)
  Receive Date: 20231018
  Receipt Date: 20231018
  Transmission Date: 20240109
  Serious: Yes (Life-Threatening, Hospitalization)
  Sender: FDA-Public Use
  Company Number: None

PATIENT
  Age: 63 Year
  Sex: Male
  Weight: 108 kg

DRUGS (1)
  1. PRIMIDONE [Suspect]
     Active Substance: PRIMIDONE
     Dosage: FREQUENCY : AT BEDTIME;?
     Route: 048
     Dates: start: 20230110, end: 20230123

REACTIONS (6)
  - Depression [None]
  - Parkinsonism [None]
  - Anxiety [None]
  - Suicidal ideation [None]
  - Tremor [None]
  - Therapy cessation [None]

NARRATIVE: CASE EVENT DATE: 20230123
